FAERS Safety Report 5026726-7 (Version None)
Quarter: 2006Q2

REPORT INFORMATION
  Report Type: 
  Country: None (occurrence: None)
  Receive Date: 20060615
  Receipt Date: 20060607
  Transmission Date: 20061013
  Serious: Yes (Hospitalization)
  Sender: FDA-Public Use
  Company Number: CH-JNJFOC-20060601970

PATIENT
  Sex: Female

DRUGS (6)
  1. RISPERDAL [Suspect]
     Indication: DRUG USE FOR UNKNOWN INDICATION
     Route: 048
  2. ZURCAL [Concomitant]
     Route: 048
  3. BEPANTHEN [Concomitant]
  4. NEOSPORIN [Concomitant]
  5. NEOSPORIN [Concomitant]
  6. NEOSPORIN [Concomitant]

REACTIONS (2)
  - DIZZINESS [None]
  - FALL [None]
